FAERS Safety Report 8460665-4 (Version None)
Quarter: 2012Q2

REPORT INFORMATION
  Report Type: 
  Country: None (occurrence: None)
  Receive Date: 20120622
  Receipt Date: 20120620
  Transmission Date: 20120825
  Serious: Yes (Other)
  Sender: FDA-Public Use
  Company Number: PHEH2012US010405

PATIENT
  Sex: Female
  Weight: 81.179 kg

DRUGS (3)
  1. GILENYA [Suspect]
     Indication: MULTIPLE SCLEROSIS
     Dosage: 0.5 MG, QD
     Route: 048
     Dates: start: 20110725
  2. NEURONTIN [Concomitant]
     Dosage: 300 MG, UNK
  3. AMITRIPTYLINE HCL [Concomitant]
     Dosage: 50 MG, UNK

REACTIONS (4)
  - HYPOAESTHESIA [None]
  - MULTIPLE SCLEROSIS RELAPSE [None]
  - HEMIPARESIS [None]
  - GAIT DISTURBANCE [None]
